FAERS Safety Report 20345656 (Version 1)
Quarter: 2022Q1

REPORT INFORMATION
  Report Type: Spontaneous
  Country: US (occurrence: US)
  Receive Date: 20220118
  Receipt Date: 20220118
  Transmission Date: 20220423
  Serious: No
  Sender: FDA-Public Use
  Company Number: US-PFIZER INC-2021523305

PATIENT
  Age: 71 Year
  Sex: Female
  Weight: 112.04 kg

DRUGS (3)
  1. ATORVASTATIN CALCIUM [Suspect]
     Active Substance: ATORVASTATIN CALCIUM
     Indication: Cerebrovascular accident
     Dosage: 10 MG, DAILY(1 TABLET DAILY BY MOUTH)
     Route: 048
  2. ASPIRIN [Concomitant]
     Active Substance: ASPIRIN
     Indication: Cerebrovascular accident
     Dosage: 81 MG, DAILY
  3. ATACAND [Concomitant]
     Active Substance: CANDESARTAN CILEXETIL
     Indication: Hypertension
     Dosage: 16.12 MG, 1X/DAY(ONCE DAILY BY MOUTH.  )

REACTIONS (2)
  - Pain [Unknown]
  - Abdominal discomfort [Unknown]
